FAERS Safety Report 13662357 (Version 1)
Quarter: 2017Q2

REPORT INFORMATION
  Report Type: Report from Study
  Country: US (occurrence: US)
  Receive Date: 20170617
  Receipt Date: 20170617
  Transmission Date: 20170830
  Serious: Yes (Death)
  Sender: FDA-Public Use
  Company Number: US-TORRENT-00003053

PATIENT
  Age: 17 Year
  Sex: Female

DRUGS (8)
  1. CETIRIZINE [Suspect]
     Active Substance: CETIRIZINE HYDROCHLORIDE
  2. HYDROXYCHLOROQUINE [Suspect]
     Active Substance: HYDROXYCHLOROQUINE
  3. HYDROXYZINE [Suspect]
     Active Substance: HYDROXYZINE HYDROCHLORIDE
  4. BUTALBITAL [Suspect]
     Active Substance: BUTALBITAL
  5. AMLODIPINE [Suspect]
     Active Substance: AMLODIPINE BESYLATE
  6. MELOXICAM. [Suspect]
     Active Substance: MELOXICAM
  7. PARACETAMOL [Suspect]
     Active Substance: ACETAMINOPHEN
  8. CAFFEINE. [Suspect]
     Active Substance: CAFFEINE

REACTIONS (3)
  - Completed suicide [Fatal]
  - Intentional overdose [None]
  - Toxicity to various agents [Fatal]
